FAERS Safety Report 4817981-4 (Version None)
Quarter: 2005Q4

REPORT INFORMATION
  Report Type: 
  Country: None (occurrence: None)
  Receive Date: 20051102
  Receipt Date: 20051027
  Transmission Date: 20060501
  Serious: Yes (Death)
  Sender: FDA-Public Use
  Company Number: BE-JNJFOC-20051006009

PATIENT
  Age: 40 Year

DRUGS (1)
  1. REMICADE [Suspect]
     Indication: UVEITIS
     Dosage: 2 INFUSIONS
     Route: 042

REACTIONS (1)
  - DEATH [None]
